FAERS Safety Report 6331745-4 (Version None)
Quarter: 2009Q3

REPORT INFORMATION
  Report Type: 
  Country: None (occurrence: None)
  Receive Date: 20090827
  Receipt Date: 20090818
  Transmission Date: 20100115
  Serious: Yes (Disabling)
  Sender: FDA-Public Use
  Company Number: BR-GILEAD-2009-0023756

PATIENT
  Sex: Male

DRUGS (10)
  1. VIREAD [Suspect]
     Indication: HIV INFECTION
     Route: 048
  2. EMTRAVIRINE [Suspect]
     Indication: HIV INFECTION
  3. DARUNAVIR [Concomitant]
     Indication: HIV INFECTION
  4. RITONAVIR [Concomitant]
     Indication: HIV INFECTION
  5. COMBIVIR [Concomitant]
     Indication: HIV INFECTION
  6. FLUTICASONE PROPIONATE [Concomitant]
     Indication: ASTHMA
  7. HYDROCHLOROTHIAZIDE [Concomitant]
     Indication: HYPERTENSION
  8. SALMETEROL [Concomitant]
     Indication: ASTHMA
  9. TIOTROPIUM BROMIDE [Concomitant]
     Indication: ASTHMA
  10. VALACYCLOVIR HCL [Concomitant]
     Indication: HERPES SIMPLEX

REACTIONS (1)
  - OSTEONECROSIS [None]
